FAERS Safety Report 8068015-2 (Version None)
Quarter: 2012Q1

REPORT INFORMATION
  Report Type: 
  Country: None (occurrence: None)
  Receive Date: 20120124
  Receipt Date: 20110914
  Transmission Date: 20120608
  Serious: No
  Sender: FDA-Public Use
  Company Number: US-AMGEN-USASP2011047675

PATIENT
  Sex: Female

DRUGS (1)
  1. PROLIA [Suspect]
     Indication: OSTEOPOROSIS POSTMENOPAUSAL
     Dates: start: 20110701

REACTIONS (5)
  - GINGIVAL SWELLING [None]
  - ROAD TRAFFIC ACCIDENT [None]
  - GLOSSODYNIA [None]
  - PAIN [None]
  - BACK PAIN [None]
